FAERS Safety Report 23376726 (Version 2)
Quarter: 2024Q1

REPORT INFORMATION
  Report Type: Report from Study
  Country: US (occurrence: US)
  Receive Date: 20240108
  Receipt Date: 20240129
  Transmission Date: 20240409
  Serious: Yes (Hospitalization)
  Sender: FDA-Public Use
  Company Number: US-GILEAD-2023-0653218

PATIENT
  Age: 75 Year
  Sex: Male

DRUGS (1)
  1. SACITUZUMAB GOVITECAN-HZIY [Suspect]
     Active Substance: SACITUZUMAB GOVITECAN-HZIY
     Indication: Bladder neoplasm
     Dosage: 700 MG ON DAYS 1 AND 8 EVERY 21 DAYS
     Route: 042
     Dates: start: 20231027

REACTIONS (3)
  - Unevaluable event [Unknown]
  - Somnolence [Unknown]
  - Diarrhoea [Unknown]
